FAERS Safety Report 5133435-2 (Version None)
Quarter: 2006Q4

REPORT INFORMATION
  Report Type: 
  Country: None (occurrence: None)
  Receive Date: 20061018
  Receipt Date: 20061006
  Transmission Date: 20070319
  Serious: Yes (Death, Life-Threatening, Other)
  Sender: FDA-Public Use
  Company Number: 2006JP000749

PATIENT
  Age: 57 Year
  Sex: Female
  Weight: 70 kg

DRUGS (9)
  1. PROGRAF [Suspect]
     Indication: RHEUMATOID ARTHRITIS
     Dosage: SEE IMAGE
     Route: 048
     Dates: start: 20050708, end: 20051204
  2. PROGRAF [Suspect]
     Indication: RHEUMATOID ARTHRITIS
     Dosage: SEE IMAGE
     Route: 048
     Dates: start: 20051205, end: 20060301
  3. LOKIFLAN (LOXOPROFEN SODIUM) TABLET [Concomitant]
  4. MEDROL [Concomitant]
  5. PREDNISOLONE [Concomitant]
  6. MUCOSTA (REBAMIPIDE) TABLET [Concomitant]
  7. RISEDRONATE SODIUM [Concomitant]
  8. CLARITIN [Concomitant]
  9. VOGLIBOSE (VOGLIBOSE) [Concomitant]

REACTIONS (11)
  - ACUTE PULMONARY OEDEMA [None]
  - ACUTE RESPIRATORY FAILURE [None]
  - CARDIOTOXICITY [None]
  - CONDITION AGGRAVATED [None]
  - DIABETES MELLITUS [None]
  - ECONOMIC PROBLEM [None]
  - INTERSTITIAL LUNG DISEASE [None]
  - LUNG NEOPLASM MALIGNANT [None]
  - LYMPHANGIOSIS CARCINOMATOSA [None]
  - NASOPHARYNGITIS [None]
  - RIGHT VENTRICULAR FAILURE [None]
